APPROVED DRUG PRODUCT: METHADONE HYDROCHLORIDE
Active Ingredient: METHADONE HYDROCHLORIDE
Strength: 5MG
Dosage Form/Route: TABLET;ORAL
Application: A208305 | Product #001
Applicant: SUN PHARMACEUTICAL INDUSTRIES INC
Approved: Mar 30, 2018 | RLD: No | RS: No | Type: DISCN